FAERS Safety Report 9119969 (Version 1)
Quarter: 2013Q1

REPORT INFORMATION
  Report Type: Spontaneous
  Country: US (occurrence: US)
  Receive Date: 20130226
  Receipt Date: 20130226
  Transmission Date: 20140127
  Serious: No
  Sender: FDA-Public Use
  Company Number: US-PFIZER INC-2013067766

PATIENT
  Age: 57 Year
  Sex: Female
  Weight: 63.49 kg

DRUGS (2)
  1. CELEBREX [Suspect]
     Indication: ARTHRALGIA
     Dosage: 200 MG, 1X/DAY
     Dates: start: 2005
  2. SYNTHROID [Concomitant]
     Indication: HYPOTHYROIDISM
     Dosage: 200 UG, 1X/DAY

REACTIONS (3)
  - Swollen tongue [Recovered/Resolved]
  - Erythema [Recovered/Resolved]
  - Pruritus [Recovered/Resolved]
